FAERS Safety Report 5896093-5 (Version None)
Quarter: 2008Q3

REPORT INFORMATION
  Report Type: 
  Country: None (occurrence: None)
  Receive Date: 20080827
  Receipt Date: 20080619
  Transmission Date: 20090109
  Serious: Yes (Other)
  Sender: FDA-Public Use
  Company Number: PHEH2008US05123

PATIENT
  Age: 66 Year
  Sex: Female

DRUGS (7)
  1. RECLAST [Suspect]
     Indication: OSTEOPOROSIS
     Dosage: 5 MG IV YEARLY, INFUSION
     Route: 042
  2. DIOVAN [Concomitant]
  3. TEKTURNA [Concomitant]
  4. JANUVIA (SITAGLIPTIN PHOSPHATE) [Concomitant]
  5. GLUCOPHAGE [Concomitant]
  6. CALCIUM (CALCIUM) [Concomitant]
  7. VITAMIN D [Concomitant]

REACTIONS (2)
  - DENTAL TREATMENT [None]
  - PAIN IN JAW [None]
